FAERS Safety Report 14184418 (Version 5)
Quarter: 2018Q1

REPORT INFORMATION
  Report Type: Spontaneous
  Country: IT (occurrence: IT)
  Receive Date: 20171113
  Receipt Date: 20180226
  Transmission Date: 20180508
  Serious: Yes (Life-Threatening, Hospitalization, Other)
  Sender: FDA-Public Use
  Company Number: IT-SA-2017SA217465

PATIENT
  Age: 49 Year
  Sex: Female
  Weight: 90 kg

DRUGS (6)
  1. METFORMIN [Suspect]
     Active Substance: METFORMIN HYDROCHLORIDE
     Indication: SUICIDE ATTEMPT
     Dosage: CUMULATIVE DOSE TO FIRST REACTION 92.5 GRAM
     Route: 048
  2. NOREPINEPHRINE. [Suspect]
     Active Substance: NOREPINEPHRINE
     Indication: SHOCK
     Dosage: 0.74 MCG/KG/MIN INFUSION
     Route: 065
  3. PIOGLITAZONE. [Suspect]
     Active Substance: PIOGLITAZONE
     Indication: SUICIDE ATTEMPT
     Dosage: CUMULATIVE DOSE TO FIRST REACTION: 1.69 GRAM
     Route: 048
  4. INSULIN GLARGINE [Suspect]
     Active Substance: INSULIN GLARGINE
     Indication: SUICIDE ATTEMPT
     Dosage: CUMULATIVE DOSE TO FIRST REACTION: 40 IU
     Route: 058
  5. EPINEPHRINE HYDROCHLORIDE. [Suspect]
     Active Substance: EPINEPHRINE HYDROCHLORIDE
     Indication: SHOCK
     Dosage: 0.5 MCG/KG/MIN INFUSION
     Route: 065
  6. NOREPINEPHRINE. [Suspect]
     Active Substance: NOREPINEPHRINE
     Indication: SHOCK
     Dosage: GRADUALLY INCREASED  TO 1.48 MCG/KG/MIN INFUSION
     Route: 065

REACTIONS (18)
  - Hypoglycaemia [Recovered/Resolved]
  - Blood pH decreased [Recovered/Resolved]
  - Metabolic acidosis [Recovered/Resolved]
  - Tachypnoea [Recovered/Resolved]
  - Heart rate increased [Recovered/Resolved]
  - Shock [Recovered/Resolved]
  - Intentional product use issue [Unknown]
  - Lactic acidosis [Recovered/Resolved]
  - Intentional overdose [Unknown]
  - Toxicity to various agents [Recovered/Resolved]
  - Unresponsive to stimuli [Recovered/Resolved]
  - Respiratory arrest [Recovered/Resolved]
  - Drug ineffective [Unknown]
  - Dehydration [Recovered/Resolved]
  - Coma scale abnormal [Recovered/Resolved]
  - Tachycardia [Recovered/Resolved]
  - Hypotension [Recovered/Resolved]
  - Intentional product misuse [Unknown]
